FAERS Safety Report 7639945-8 (Version None)
Quarter: 2011Q3

REPORT INFORMATION
  Report Type: 
  Country: None (occurrence: None)
  Receive Date: 20110727
  Receipt Date: 20110725
  Transmission Date: 20111222
  Serious: Yes (Death, Hospitalization)
  Sender: FDA-Public Use
  Company Number: FR-AMGEN-FRACT2011031206

PATIENT
  Age: 80 Year
  Sex: Male

DRUGS (15)
  1. NITROGLYCERIN [Concomitant]
     Dosage: UNK UNK, QD
  2. METOPROLOL TARTRATE [Concomitant]
     Dosage: 100 MG, BID
  3. OMACOR [Concomitant]
     Dosage: UNK UNK, QD
  4. ALLOPURINOL [Concomitant]
  5. AMLODIPINE [Concomitant]
     Dosage: UNK UNK, QD
  6. COLCHICINE [Concomitant]
  7. LASIX [Concomitant]
     Dosage: 80 MG, QD
     Route: 048
  8. BISOPROLOL FUMARATE [Concomitant]
     Dosage: 5 MG, QD
  9. NEXIUM [Concomitant]
     Dosage: 20 MG, QD
     Route: 048
  10. PRAVASTATIN [Concomitant]
     Dosage: 20 MG, QD
     Route: 048
  11. ADANCOR [Concomitant]
     Dosage: 10 MG, BID
     Route: 048
  12. BLINDED DARBEPOETIN ALFA [Suspect]
     Indication: CARDIAC FAILURE
     Dates: start: 20090303, end: 20110609
  13. PLAVIX [Concomitant]
     Dosage: 75 MG, QD
     Route: 048
  14. PLACEBO [Suspect]
     Indication: CARDIAC FAILURE
     Dates: start: 20090303, end: 20110609
  15. ASPIRIN [Concomitant]
     Dosage: 160 MG, QD
     Route: 048

REACTIONS (2)
  - MYOCARDIAL INFARCTION [None]
  - ARTERIAL OCCLUSIVE DISEASE [None]
